FAERS Safety Report 22021942 (Version 1)
Quarter: 2023Q1

REPORT INFORMATION
  Report Type: Spontaneous
  Country: US (occurrence: None)
  Receive Date: 20230219
  Receipt Date: 20230219
  Transmission Date: 20230418
  Serious: Yes (Other)
  Sender: FDA-Public Use
  Company Number: None

PATIENT
  Age: 79 Year
  Sex: Male
  Weight: 76.5 kg

DRUGS (5)
  1. AMOXICILLIN [Suspect]
     Active Substance: AMOXICILLIN
     Indication: Root canal infection
     Dosage: 1 TABLET 3 TIMES A DAY ORAL
     Route: 048
     Dates: start: 20230204, end: 20230205
  2. LISINOPRIL [Concomitant]
     Active Substance: LISINOPRIL
  3. HYDROCHLOROTHIAZIDE [Concomitant]
     Active Substance: HYDROCHLOROTHIAZIDE
  4. ASPIRIN [Concomitant]
     Active Substance: ASPIRIN
  5. VITAMIN D NOS [Concomitant]
     Active Substance: VITAMIN D NOS

REACTIONS (5)
  - Rash [None]
  - Rash [None]
  - Rash [None]
  - Hypersensitivity [None]
  - Therapy cessation [None]

NARRATIVE: CASE EVENT DATE: 20230205
